FAERS Safety Report 17960094 (Version 1)
Quarter: 2020Q2

REPORT INFORMATION
  Report Type: Spontaneous
  Country: US (occurrence: US)
  Receive Date: 20200630
  Receipt Date: 20200630
  Transmission Date: 20200714
  Serious: Yes (Hospitalization, Other)
  Sender: FDA-Public Use
  Company Number: US-GLOBAL BLOOD THERAPEUTICS INC-US-GBT-20-01646

PATIENT
  Age: 33 Year
  Sex: Female

DRUGS (1)
  1. OXBRYTA [Suspect]
     Active Substance: VOXELOTOR
     Indication: SICKLE CELL DISEASE
     Route: 048
     Dates: start: 20200218

REACTIONS (4)
  - Product dose omission [Unknown]
  - Sickle cell anaemia with crisis [Recovered/Resolved]
  - Thrombosis [Recovering/Resolving]
  - Escherichia infection [Recovered/Resolved]

NARRATIVE: CASE EVENT DATE: 2020
